FAERS Safety Report 18019887 (Version 1)
Quarter: 2020Q3

REPORT INFORMATION
  Report Type: Spontaneous
  Country: US (occurrence: US)
  Receive Date: 20200714
  Receipt Date: 20200714
  Transmission Date: 20201103
  Serious: No
  Sender: FDA-Public Use
  Company Number: US-PFIZER INC-2020267441

PATIENT

DRUGS (2)
  1. SORBITOL. [Suspect]
     Active Substance: SORBITOL
     Indication: HEADACHE
  2. ADVIL MIGRAINE [Suspect]
     Active Substance: IBUPROFEN
     Indication: HEADACHE
     Dosage: UNK

REACTIONS (2)
  - Reaction to excipient [Unknown]
  - Headache [Unknown]
